FAERS Safety Report 22591131 (Version 1)
Quarter: 2023Q2

REPORT INFORMATION
  Report Type: Spontaneous
  Country: JP (occurrence: JP)
  Receive Date: 20230612
  Receipt Date: 20230612
  Transmission Date: 20230722
  Serious: Yes (Death, Hospitalization, Other)
  Sender: FDA-Public Use
  Company Number: JP-GSKJP-JP2023JPN079404AA

PATIENT

DRUGS (1)
  1. FLOLAN [Suspect]
     Active Substance: EPOPROSTENOL SODIUM
     Indication: Pulmonary arterial hypertension
     Dosage: UNK, CO
     Route: 042

REACTIONS (7)
  - Goitre [Not Recovered/Not Resolved]
  - Tracheal stenosis [Not Recovered/Not Resolved]
  - Hyperthyroidism [Recovering/Resolving]
  - Dyspnoea [Unknown]
  - Cardiogenic shock [Unknown]
  - Hypercapnia [Unknown]
  - Respiratory failure [Fatal]
